FAERS Safety Report 4625552-8 (Version None)
Quarter: 2005Q2

REPORT INFORMATION
  Report Type: 
  Country: None (occurrence: None)
  Receive Date: 20050401
  Receipt Date: 20041115
  Transmission Date: 20051028
  Serious: Yes (Death, Life-Threatening, Hospitalization, Disabling)
  Sender: FDA-Public Use
  Company Number: US-MERCK-0411USA02579

PATIENT
  Age: 78 Year
  Sex: Male
  Weight: 46 kg

DRUGS (4)
  1. VIOXX [Suspect]
     Indication: ARTHRITIS
     Route: 048
     Dates: start: 20031201, end: 20040202
  2. VIOXX [Suspect]
     Indication: BURSITIS
     Route: 048
     Dates: start: 20031201, end: 20040202
  3. ALBUTEROL [Concomitant]
     Indication: ARTHRITIS
     Route: 055
     Dates: start: 19960101
  4. VERAPAMIL [Concomitant]
     Indication: ARTHRITIS
     Route: 065
     Dates: start: 19960101

REACTIONS (11)
  - ADVERSE EVENT [None]
  - ANAEMIA [None]
  - CARDIO-RESPIRATORY ARREST [None]
  - CHRONIC OBSTRUCTIVE PULMONARY DISEASE [None]
  - DECREASED APPETITE [None]
  - GASTRITIS [None]
  - HYPONATRAEMIA [None]
  - MYOCARDIAL INFARCTION [None]
  - PNEUMONIA ASPIRATION [None]
  - PULMONARY OEDEMA [None]
  - WEIGHT DECREASED [None]
